FAERS Safety Report 5374182-1 (Version None)
Quarter: 2007Q2

REPORT INFORMATION
  Report Type: 
  Country: None (occurrence: None)
  Receive Date: 20070627
  Receipt Date: 20061114
  Transmission Date: 20071010
  Serious: Yes (Death)
  Sender: FDA-Public Use
  Company Number: 471491

PATIENT
  Age: 82 Year
  Sex: Male
  Weight: 150 kg

DRUGS (1)
  1. XELODA [Suspect]
     Indication: COLORECTAL CANCER METASTATIC
     Dosage: 1000 MG 2 PER DAY ORAL
     Route: 048
     Dates: start: 20060519, end: 20061108

REACTIONS (1)
  - DEATH [None]
